FAERS Safety Report 24693315 (Version 4)
Quarter: 2025Q3

REPORT INFORMATION
  Report Type: Report from Study
  Country: US (occurrence: US)
  Receive Date: 20241203
  Receipt Date: 20250717
  Transmission Date: 20251021
  Serious: Yes (Other)
  Sender: UCB
  Company Number: US-UCBSA-2024062401

PATIENT
  Age: 23 Year
  Sex: Male
  Weight: 57 kg

DRUGS (6)
  1. FINTEPLA [Suspect]
     Active Substance: FENFLURAMINE
     Indication: Lennox-Gastaut syndrome
     Dosage: 6 MILLILITER, 2X/DAY (BID)
  2. FINTEPLA [Suspect]
     Active Substance: FENFLURAMINE
     Indication: Seizure
     Dosage: 13.2 MILLIGRAM, 2X/DAY (BID)
     Dates: start: 20211110
  3. FINTEPLA [Suspect]
     Active Substance: FENFLURAMINE
     Dosage: 0.47 MILLIGRAM/KILOGRAM, ONCE DAILY (QD)
  4. FINTEPLA [Suspect]
     Active Substance: FENFLURAMINE
     Dosage: 4.4 MILLIGRAM/KILOGRAM, ONCE DAILY (QD)
  5. FINTEPLA [Suspect]
     Active Substance: FENFLURAMINE
     Dosage: 0.44 MILLIGRAM/KILOGRAM, ONCE DAILY (QD)
  6. FINTEPLA [Suspect]
     Active Substance: FENFLURAMINE
     Dosage: 0.46 MILLIGRAM/KILOGRAM, ONCE DAILY (QD)

REACTIONS (2)
  - Cardiac steatosis [Not Recovered/Not Resolved]
  - Tricuspid valve incompetence [Not Recovered/Not Resolved]

NARRATIVE: CASE EVENT DATE: 20241123
